FAERS Safety Report 8523351-8 (Version None)
Quarter: 2012Q3

REPORT INFORMATION
  Report Type: 
  Country: None (occurrence: None)
  Receive Date: 20120713
  Receipt Date: 20120713
  Transmission Date: 20120928
  Serious: No
  Sender: FDA-Public Use
  Company Number: None

PATIENT
  Age: 56 Year
  Sex: Male
  Weight: 49.5 kg

DRUGS (2)
  1. FLUOROURACIL [Suspect]
     Dosage: 4032 MG IV
     Route: 042
     Dates: start: 20111011, end: 20111012
  2. OXALIPLATIN [Suspect]
     Dosage: 139 MG ONCE IV
     Route: 042
     Dates: start: 20111015, end: 20111015

REACTIONS (2)
  - DEHYDRATION [None]
  - RENAL FAILURE ACUTE [None]
